FAERS Safety Report 12294595 (Version 1)
Quarter: 2016Q2

REPORT INFORMATION
  Report Type: Spontaneous
  Country: US (occurrence: US)
  Receive Date: 20160422
  Receipt Date: 20160422
  Transmission Date: 20160815
  Serious: Yes (Other)
  Sender: FDA-Public Use
  Company Number: US-CIPLA LTD.-2016US03886

PATIENT

DRUGS (2)
  1. LAMOTRIGINE. [Suspect]
     Active Substance: LAMOTRIGINE
     Indication: EPILEPSY
     Dosage: 600 MG, PER DAY
     Route: 065
  2. ACETAZOLAMIDE. [Suspect]
     Active Substance: ACETAZOLAMIDE
     Indication: EPILEPSY
     Dosage: UNK
     Route: 065

REACTIONS (9)
  - Vision blurred [Unknown]
  - Somnolence [Unknown]
  - Balance disorder [Unknown]
  - Toxicity to various agents [Unknown]
  - Confusional state [Unknown]
  - Diplopia [Unknown]
  - Vertigo [Unknown]
  - Nausea [Unknown]
  - Ammonia increased [Unknown]
